FAERS Safety Report 18279261 (Version 2)
Quarter: 2020Q3

REPORT INFORMATION
  Report Type: Spontaneous
  Country: US (occurrence: US)
  Receive Date: 20200917
  Receipt Date: 20200929
  Transmission Date: 20201103
  Serious: No
  Sender: FDA-Public Use
  Company Number: US-AMAG PHARMACEUTICALS, INC.-AMAG202003199

PATIENT
  Age: 40 Year
  Sex: Female

DRUGS (3)
  1. CLINDESSE [Concomitant]
     Active Substance: CLINDAMYCIN PHOSPHATE
     Indication: BACTERIAL VAGINOSIS
     Dates: start: 20200825, end: 20200825
  2. MAKENA [Suspect]
     Active Substance: HYDROXYPROGESTERONE CAPROATE
     Indication: PREMATURE DELIVERY
     Route: 058
     Dates: start: 20200817
  3. METROGEL VAG [Concomitant]
     Indication: BACTERIAL VAGINOSIS
     Dates: start: 20200721, end: 20200726

REACTIONS (2)
  - Breast pain [Recovered/Resolved]
  - Constipation [Recovered/Resolved]

NARRATIVE: CASE EVENT DATE: 2020
